FAERS Safety Report 4867411-1 (Version None)
Quarter: 2005Q4

REPORT INFORMATION
  Report Type: 
  Country: None (occurrence: None)
  Receive Date: 20051222
  Receipt Date: 20051214
  Transmission Date: 20060501
  Serious: Yes (Other)
  Sender: FDA-Public Use
  Company Number: 2005168255

PATIENT
  Age: 24 Year
  Sex: Male

DRUGS (1)
  1. BENADRYL [Suspect]
     Indication: PRURITUS GENERALISED
     Dosage: 1-2 ULTRATABS DAILY, ORAL
     Route: 048
     Dates: start: 20050101

REACTIONS (3)
  - DRUG DEPENDENCE [None]
  - PRURITUS GENERALISED [None]
  - RHINORRHOEA [None]
